FAERS Safety Report 7141425-3 (Version None)
Quarter: 2010Q4

REPORT INFORMATION
  Report Type: 
  Country: None (occurrence: None)
  Receive Date: 20101207
  Receipt Date: 20101130
  Transmission Date: 20110411
  Serious: Yes (Hospitalization, Other)
  Sender: FDA-Public Use
  Company Number: US-ELI_LILLY_AND_COMPANY-US201011007694

PATIENT
  Age: 77 Year
  Sex: Female
  Weight: 112.47 kg

DRUGS (2)
  1. BYETTA [Suspect]
     Indication: PRODUCT USED FOR UNKNOWN INDICATION
     Dosage: 10 UG, 2/D
     Route: 058
     Dates: start: 20090601, end: 20100501
  2. LANTUS [Concomitant]

REACTIONS (2)
  - LABORATORY TEST ABNORMAL [None]
  - PANCREATITIS [None]
